FAERS Safety Report 9310348 (Version 2)
Quarter: 2013Q2

REPORT INFORMATION
  Report Type: Spontaneous
  Country: JP (occurrence: JP)
  Receive Date: 20130527
  Receipt Date: 20130613
  Transmission Date: 20140414
  Serious: Yes (Hospitalization, Other)
  Sender: FDA-Public Use
  Company Number: JP-PFIZER INC-2013145378

PATIENT
  Age: 60 Year
  Sex: Female

DRUGS (3)
  1. VANCOMYCIN HCL [Suspect]
     Dosage: UNK
     Dates: start: 201305
  2. METOLATE [Suspect]
     Indication: RHEUMATOID ARTHRITIS
     Dosage: 8 MG, WEEKLY
     Route: 048
     Dates: end: 201305
  3. ZOSYN [Concomitant]
     Dosage: UNK
     Dates: start: 201305

REACTIONS (2)
  - Pancytopenia [Recovering/Resolving]
  - Purulence [Recovering/Resolving]
